FAERS Safety Report 4675233-X (Version None)
Quarter: 2005Q2

REPORT INFORMATION
  Report Type: 
  Country: None (occurrence: None)
  Receive Date: 20050527
  Receipt Date: 20050523
  Transmission Date: 20051028
  Serious: Yes (Hospitalization)
  Sender: FDA-Public Use
  Company Number: PHRM2005FR01611

PATIENT
  Age: 71 Year
  Sex: Male

DRUGS (3)
  1. THALIDOMIDE [Concomitant]
  2. DEXAMETHASONE [Concomitant]
  3. ZOMETA [Suspect]
     Indication: MULTIPLE MYELOMA
     Dosage: 4 MG, QMO
     Route: 042
     Dates: start: 20010101

REACTIONS (3)
  - ASEPTIC NECROSIS BONE [None]
  - TOOTH DISORDER [None]
  - TOOTH EXTRACTION [None]
